FAERS Safety Report 6285060-8 (Version None)
Quarter: 2009Q3

REPORT INFORMATION
  Report Type: 
  Country: None (occurrence: None)
  Receive Date: 20090727
  Receipt Date: 20090720
  Transmission Date: 20100115
  Serious: Yes (Other)
  Sender: FDA-Public Use
  Company Number: US-GENENTECH-285254

PATIENT
  Sex: Female

DRUGS (2)
  1. RITUXAN [Suspect]
     Indication: CHRONIC LYMPHOCYTIC LEUKAEMIA
     Dosage: 600 MG, 1/MONTH
     Route: 042
     Dates: start: 20090210
  2. RITUXAN [Suspect]
     Dosage: UNK
     Dates: start: 20090527

REACTIONS (2)
  - APHASIA [None]
  - HERPES ZOSTER [None]
